FAERS Safety Report 17569927 (Version 2)
Quarter: 2020Q1

REPORT INFORMATION
  Report Type: Report from Study
  Country: CN (occurrence: CN)
  Receive Date: 20200323
  Receipt Date: 20200323
  Transmission Date: 20200409
  Serious: Yes (Other)
  Sender: FDA-Public Use
  Company Number: CN-ROCHE-2564937

PATIENT

DRUGS (4)
  1. SOFOSBUVIR [Concomitant]
     Active Substance: SOFOSBUVIR
  2. LEDIPASVIR [Concomitant]
     Active Substance: LEDIPASVIR
  3. DACLATASVIR. [Concomitant]
     Active Substance: DACLATASVIR
  4. RIBAVIRIN. [Suspect]
     Active Substance: RIBAVIRIN
     Indication: HEPATITIS C
     Route: 065

REACTIONS (4)
  - Anaemia [Unknown]
  - Myocardial necrosis marker increased [Unknown]
  - Fatigue [Unknown]
  - Rash [Unknown]
